FAERS Safety Report 11840492 (Version 1)
Quarter: 2015Q4

REPORT INFORMATION
  Report Type: Spontaneous
  Country: US (occurrence: None)
  Receive Date: 20151215
  Receipt Date: 20151215
  Transmission Date: 20160305
  Serious: No
  Sender: FDA-Public Use
  Company Number: None

PATIENT
  Age: 47 Year
  Sex: Male
  Weight: 77.11 kg

DRUGS (1)
  1. GLATOPA [Suspect]
     Active Substance: GLATIRAMER ACETATE
     Indication: MULTIPLE SCLEROSIS
     Dosage: ONE SYRINGE QD
     Route: 058
     Dates: start: 20150701, end: 20151214

REACTIONS (2)
  - Injection site vesicles [None]
  - Product quality issue [None]

NARRATIVE: CASE EVENT DATE: 20151214
